FAERS Safety Report 5897540-5 (Version None)
Quarter: 2008Q3

REPORT INFORMATION
  Report Type: 
  Country: None (occurrence: None)
  Receive Date: 20080916
  Receipt Date: 20080403
  Transmission Date: 20090109
  Serious: Yes (Other)
  Sender: FDA-Public Use
  Company Number: S08-USA-00651-01

PATIENT
  Age: 15 Year
  Sex: Female

DRUGS (4)
  1. CELEXA [Suspect]
     Indication: ANXIETY
     Dosage: 20 MG (20 MG,ONCE A DAY),ORAL
     Route: 048
     Dates: start: 20080208, end: 20080212
  2. CELEXA [Suspect]
     Indication: DEPRESSION
     Dosage: 20 MG (20 MG,ONCE A DAY),ORAL
     Route: 048
     Dates: start: 20080208, end: 20080212
  3. MELATONIN (MELATONIN) (MELATONIN) [Concomitant]
  4. IBUPROFEN [Concomitant]

REACTIONS (6)
  - BACK PAIN [None]
  - DYSKINESIA [None]
  - FLUSHING [None]
  - HYPERHIDROSIS [None]
  - NIGHTMARE [None]
  - PAIN IN EXTREMITY [None]
